FAERS Safety Report 10070439 (Version 1)
Quarter: 2014Q2

REPORT INFORMATION
  Report Type: Report from Study
  Country: BR (occurrence: BR)
  Receive Date: 20140410
  Receipt Date: 20140410
  Transmission Date: 20141212
  Serious: Yes (Hospitalization, Other)
  Sender: FDA-Public Use
  Company Number: PHHY2014BR043421

PATIENT
  Sex: Female
  Weight: 83 kg

DRUGS (3)
  1. DIOVAN [Suspect]
     Indication: HYPERTENSION
     Dosage: 1 DF (160 MG), IN THE MORNING
     Route: 048
     Dates: start: 201207
  2. MONOCORDIL [Concomitant]
     Indication: ANGINA PECTORIS
     Dosage: UNK UKN, UNK
     Route: 060
     Dates: start: 201207
  3. SOTALOL HYDROCHLORIDE [Concomitant]
     Indication: ANGINA PECTORIS
     Dosage: 0.5 DF, (20 MG)
     Dates: start: 201207

REACTIONS (3)
  - Venous thrombosis [Recovering/Resolving]
  - Blood cholesterol abnormal [Recovering/Resolving]
  - Blood disorder [Unknown]
